FAERS Safety Report 9611722 (Version 1)
Quarter: 2013Q4

REPORT INFORMATION
  Report Type: Spontaneous
  Country: US (occurrence: US)
  Receive Date: 20131010
  Receipt Date: 20131010
  Transmission Date: 20140711
  Serious: No
  Sender: FDA-Public Use
  Company Number: US-PFIZER INC-2013287963

PATIENT
  Sex: Male

DRUGS (5)
  1. ADVIL ALLERGY AND CONGESTION RELIEF [Suspect]
     Indication: RHINORRHOEA
     Dosage: UNK
  2. ADVIL ALLERGY AND CONGESTION RELIEF [Suspect]
     Indication: HEADACHE
  3. ADVIL ALLERGY AND CONGESTION RELIEF [Suspect]
     Indication: SNEEZING
  4. ADVIL ALLERGY AND CONGESTION RELIEF [Suspect]
     Indication: NASAL CONGESTION
  5. ADVIL ALLERGY AND CONGESTION RELIEF [Suspect]
     Indication: SINUS HEADACHE

REACTIONS (1)
  - Drug ineffective [Unknown]
